FAERS Safety Report 12705806 (Version 2)
Quarter: 2016Q3

REPORT INFORMATION
  Report Type: Spontaneous
  Country: AR (occurrence: AR)
  Receive Date: 20160901
  Receipt Date: 20160909
  Transmission Date: 20161109
  Serious: Yes (Hospitalization, Other)
  Sender: FDA-Public Use
  Company Number: AR-PFIZER INC-2016301156

PATIENT
  Age: 67 Year
  Sex: Male

DRUGS (1)
  1. SUTENT [Suspect]
     Active Substance: SUNITINIB MALATE
     Indication: METASTATIC RENAL CELL CARCINOMA
     Dosage: 50 MG, CYCLIC (SCHEME 4/2)
     Dates: start: 20150715

REACTIONS (16)
  - Anal injury [Recovered/Resolved]
  - Malaise [Recovering/Resolving]
  - Synovial cyst [Recovered/Resolved]
  - Vomiting [Recovered/Resolved]
  - Injury [Recovered/Resolved]
  - Mobility decreased [Unknown]
  - Depression [Recovering/Resolving]
  - Weight decreased [Unknown]
  - Haemorrhage [Recovered/Resolved]
  - Oral mucosal blistering [Recovered/Resolved]
  - Disease progression [Recovered/Resolved]
  - Metastatic renal cell carcinoma [Recovered/Resolved]
  - Diarrhoea [Recovered/Resolved]
  - Arteriovenous fistula site complication [Recovered/Resolved]
  - Abasia [Recovered/Resolved]
  - Decreased appetite [Recovered/Resolved]

NARRATIVE: CASE EVENT DATE: 2016
